FAERS Safety Report 10153096 (Version 1)
Quarter: 2014Q2

REPORT INFORMATION
  Report Type: Spontaneous
  Country: US (occurrence: US)
  Receive Date: 20140505
  Receipt Date: 20140505
  Transmission Date: 20141212
  Serious: Yes (Other)
  Sender: FDA-Public Use
  Company Number: US-BRISTOL-MYERS SQUIBB COMPANY-20677639

PATIENT
  Age: 52 Year
  Sex: Female
  Weight: 83.9 kg

DRUGS (3)
  1. BYDUREON [Suspect]
  2. LEVEMIR [Concomitant]
     Dosage: 1DF:34UTS
  3. ALBUTEROL INHALER [Concomitant]

REACTIONS (4)
  - Thyroid neoplasm [Unknown]
  - Hypersensitivity [Unknown]
  - Cystitis [Unknown]
  - Weight decreased [Unknown]
